FAERS Safety Report 5878142-3 (Version None)
Quarter: 2008Q3

REPORT INFORMATION
  Report Type: 
  Country: None (occurrence: None)
  Receive Date: 20080911
  Receipt Date: 20080909
  Transmission Date: 20090109
  Serious: Yes (Hospitalization)
  Sender: FDA-Public Use
  Company Number: PHHO2005DE20180

PATIENT
  Sex: Male
  Weight: 87 kg

DRUGS (6)
  1. TASIGNA [Suspect]
     Indication: CHRONIC MYELOID LEUKAEMIA
     Dosage: 800 MG, DAILY
     Route: 048
     Dates: start: 20051018
  2. PLAVIX [Concomitant]
  3. RAMIPRIL [Concomitant]
  4. ZOCOR [Concomitant]
  5. BISOPROLOL FUMARATE [Concomitant]
     Dosage: UNK
  6. DASATINIB [Concomitant]
     Indication: CHRONIC MYELOID LEUKAEMIA

REACTIONS (11)
  - CARDIAC FAILURE [None]
  - CATHETERISATION CARDIAC [None]
  - CHEST PAIN [None]
  - CORONARY ARTERIAL STENT INSERTION [None]
  - CORONARY ARTERY DISEASE [None]
  - CORONARY ARTERY STENOSIS [None]
  - DYSPNOEA [None]
  - ELECTROCARDIOGRAM ST SEGMENT ELEVATION [None]
  - MYOCARDIAL INFARCTION [None]
  - ORTHOPNOEA [None]
  - PULMONARY OEDEMA [None]
